FAERS Safety Report 4763804-1 (Version None)
Quarter: 2005Q3

REPORT INFORMATION
  Report Type: 
  Country: None (occurrence: None)
  Receive Date: 20050901
  Receipt Date: 20050411
  Transmission Date: 20060218
  Serious: Yes (Other)
  Sender: FDA-Public Use
  Company Number: 17759

PATIENT
  Sex: Female
  Weight: 54.4316 kg

DRUGS (1)
  1. PACLITAXEL [Suspect]

REACTIONS (4)
  - CHEST DISCOMFORT [None]
  - COUGH [None]
  - HEADACHE [None]
  - NAUSEA [None]
